FAERS Safety Report 4598721-3 (Version None)
Quarter: 2005Q1

REPORT INFORMATION
  Report Type: 
  Country: None (occurrence: None)
  Receive Date: 20050302
  Receipt Date: 20030217
  Transmission Date: 20050727
  Serious: Yes (Other)
  Sender: FDA-Public Use
  Company Number: 200510069BCA

PATIENT
  Sex: 0

DRUGS (3)
  1. ASPIRIN [Suspect]
     Indication: PROPHYLAXIS
     Dosage: 325 MG, QD, ORAL
     Route: 048
     Dates: start: 19930101, end: 19940101
  2. ASPIRIN [Suspect]
     Indication: PROPHYLAXIS
     Dosage: 81 MG, QD ORAL;  81 MG, QOD, ORAL
     Route: 048
     Dates: start: 19950101
  3. PANTOPRAZOLE SODIUM [Concomitant]

REACTIONS (2)
  - HAEMANGIOMA OF LIVER [None]
  - HAEMATURIA [None]
